FAERS Safety Report 16136638 (Version 2)
Quarter: 2019Q3

REPORT INFORMATION
  Report Type: Spontaneous
  Country: US (occurrence: US)
  Receive Date: 20190329
  Receipt Date: 20190930
  Transmission Date: 20191004
  Serious: Yes (Other)
  Sender: FDA-Public Use
  Company Number: US-MYLANLABS-2019M1028330

PATIENT
  Sex: Female
  Weight: 59.8 kg

DRUGS (11)
  1. TADALAFIL TABLETS USP [Suspect]
     Active Substance: TADALAFIL
     Indication: SCLERODERMA
     Dosage: UNK
     Route: 048
  2. VITAMIN D                          /07503901/ [Concomitant]
     Active Substance: VITAMIN D NOS
     Dosage: UNK
  3. ZOFRAN [Concomitant]
     Active Substance: ONDANSETRON HYDROCHLORIDE
     Dosage: 8 MILLIGRAM, QD
  4. FOLIC ACID. [Concomitant]
     Active Substance: FOLIC ACID
     Dosage: 1 MILLIGRAM, QD
  5. PREDNISONE. [Concomitant]
     Active Substance: PREDNISONE
     Dosage: 5 MILLIGRAM, QD
  6. METHOTREXATE. [Concomitant]
     Active Substance: METHOTREXATE
     Dosage: 2.5 MILLIGRAM, QID EVERY 10 DAYS
  7. ALEVE [Concomitant]
     Active Substance: NAPROXEN SODIUM
     Dosage: 200 MILLIGRAM, QD (IF I NEED, IF I INJURE MY ANKLE)
  8. DOXAZOSIN [Concomitant]
     Active Substance: DOXAZOSIN MESYLATE
     Dosage: 1 MILLIGRAM, QD
  9. PLETAL [Concomitant]
     Active Substance: CILOSTAZOL
     Dosage: 100 MILLIGRAM, BID
  10. HYOSCYAMINE SULFATE. [Concomitant]
     Active Substance: HYOSCYAMINE SULFATE
     Dosage: 0.375 MILLIGRAM, BID
  11. PRAVASTATIN. [Concomitant]
     Active Substance: PRAVASTATIN
     Dosage: 40 MILLIGRAM, QD

REACTIONS (2)
  - Off label use [Not Recovered/Not Resolved]
  - Drug ineffective for unapproved indication [Not Recovered/Not Resolved]
